FAERS Safety Report 9307660 (Version 2)
Quarter: 2013Q2

REPORT INFORMATION
  Report Type: Spontaneous
  Country: US (occurrence: US)
  Receive Date: 20130524
  Receipt Date: 20130614
  Transmission Date: 20140414
  Serious: No
  Sender: FDA-Public Use
  Company Number: US-PFIZER INC-2013158321

PATIENT
  Age: 86 Year
  Sex: Female
  Weight: 68.03 kg

DRUGS (2)
  1. CELEBREX [Suspect]
     Indication: SWELLING
     Dosage: 200 MG, ONCE DAILY
     Route: 048
     Dates: start: 20130508, end: 20130520
  2. CELEBREX [Suspect]
     Indication: ARTHRALGIA

REACTIONS (7)
  - Drug hypersensitivity [Unknown]
  - Hypoaesthesia [Unknown]
  - Gastrooesophageal reflux disease [Unknown]
  - Hyperhidrosis [Unknown]
  - Swelling [Unknown]
  - Asthenia [Unknown]
  - Drug ineffective [Unknown]
